FAERS Safety Report 7111444-1 (Version None)
Quarter: 2010Q4

REPORT INFORMATION
  Report Type: 
  Country: None (occurrence: None)
  Receive Date: 20101118
  Receipt Date: 20100528
  Transmission Date: 20110411
  Serious: Yes (Other)
  Sender: FDA-Public Use
  Company Number: US-PFIZER INC-2010067769

PATIENT
  Sex: Male
  Weight: 76 kg

DRUGS (4)
  1. ZYVOX [Suspect]
     Indication: OSTEOMYELITIS
     Dosage: 600 MG, 2X/DAY
     Route: 042
     Dates: start: 20100101
  2. ZYVOX [Suspect]
     Indication: ABSCESS LIMB
  3. VANCOMYCIN [Suspect]
     Indication: OSTEOMYELITIS
     Dosage: 1500 MG, 3X/DAY
     Dates: start: 20100101, end: 20100501
  4. VANCOMYCIN [Suspect]
     Indication: ABSCESS LIMB

REACTIONS (2)
  - PANCYTOPENIA [None]
  - RASH [None]
